FAERS Safety Report 15391483 (Version 1)
Quarter: 2018Q3

REPORT INFORMATION
  Report Type: Spontaneous
  Country: US (occurrence: US)
  Receive Date: 20180910
  Receipt Date: 20180910
  Transmission Date: 20181010
  Serious: Yes (Other)
  Sender: FDA-Public Use
  Company Number: None

PATIENT
  Age: 54 Year
  Sex: Male
  Weight: 80.1 kg

DRUGS (6)
  1. SYNTHROID [Concomitant]
     Active Substance: LEVOTHYROXINE SODIUM
  2. OCEAN SALINE NASAL SPRAY [Suspect]
     Active Substance: SODIUM CHLORIDE
     Indication: SINUSITIS
     Dosage: ?          QUANTITY:2 SPRAY(S);OTHER ROUTE:NOSE: NASAL SPRAY?
     Dates: start: 20180101, end: 20180905
  3. OCEAN SALINE NASAL SPRAY [Suspect]
     Active Substance: SODIUM CHLORIDE
     Indication: PROPHYLAXIS
     Dosage: ?          QUANTITY:2 SPRAY(S);OTHER ROUTE:NOSE: NASAL SPRAY?
     Dates: start: 20180101, end: 20180905
  4. OCEAN SALINE NASAL SPRAY [Suspect]
     Active Substance: SODIUM CHLORIDE
     Indication: RHINITIS
     Dosage: ?          QUANTITY:2 SPRAY(S);OTHER ROUTE:NOSE: NASAL SPRAY?
     Dates: start: 20180101, end: 20180905
  5. DAILY VITAMIN [Concomitant]
     Active Substance: VITAMINS
  6. CALCIUM/MAGNESIUM [Concomitant]
     Active Substance: CALCIUM\MAGNESIUM

REACTIONS (4)
  - Dizziness [None]
  - Mental impairment [None]
  - Visual impairment [None]
  - Product lot number issue [None]

NARRATIVE: CASE EVENT DATE: 20180719
